FAERS Safety Report 9162607 (Version 2)
Quarter: 2013Q2

REPORT INFORMATION
  Report Type: Spontaneous
  Country: US (occurrence: None)
  Receive Date: 20130312
  Receipt Date: 20130502
  Transmission Date: 20140414
  Serious: Yes (Death, Hospitalization, Other)
  Sender: FDA-Public Use
  Company Number: AXC-2013-000081

PATIENT
  Age: 80 Year
  Sex: Female

DRUGS (2)
  1. MESALAMINE [Suspect]
     Indication: COLITIS
  2. PREDNISONE [Suspect]
     Indication: COLITIS

REACTIONS (9)
  - Enteropathy-associated T-cell lymphoma [None]
  - Weight decreased [None]
  - Diarrhoea [None]
  - Nausea [None]
  - Early satiety [None]
  - Fatigue [None]
  - Asthenia [None]
  - Respiratory failure [None]
  - Septic shock [None]
